FAERS Safety Report 19569144 (Version 1)
Quarter: 2021Q3

REPORT INFORMATION
  Report Type: Report from Study
  Country: JP (occurrence: JP)
  Receive Date: 20210716
  Receipt Date: 20210716
  Transmission Date: 20211014
  Serious: Yes (Hospitalization)
  Sender: FDA-Public Use
  Company Number: JP-EISAI MEDICAL RESEARCH-EC-2021-095955

PATIENT
  Age: 37 Year
  Sex: Male
  Weight: 45 kg

DRUGS (6)
  1. TAKECAB [Concomitant]
     Active Substance: VONOPRAZAN FUMARATE
     Indication: GASTRIC ULCER
     Route: 065
     Dates: start: 20160613
  2. ERIBULIN MESILATE [Suspect]
     Active Substance: ERIBULIN
     Route: 042
     Dates: start: 202107
  3. AMLODIPINE [Concomitant]
     Active Substance: AMLODIPINE BESYLATE
     Indication: HYPERTENSION
     Route: 065
     Dates: start: 2016
  4. TOPILORIC [Concomitant]
     Active Substance: TOPIROXOSTAT
     Indication: HYPERURICAEMIA
     Route: 065
     Dates: start: 2016
  5. ERIBULIN MESILATE [Suspect]
     Active Substance: ERIBULIN
     Indication: NEOPLASM
     Route: 042
     Dates: start: 20210701, end: 202107
  6. NIVOLUMAB (GENETICAL RECOMBINATION) [Suspect]
     Active Substance: NIVOLUMAB
     Indication: NEOPLASM
     Route: 041
     Dates: start: 20210701

REACTIONS (1)
  - Febrile neutropenia [Recovered/Resolved]

NARRATIVE: CASE EVENT DATE: 20210709
